FAERS Safety Report 13051308 (Version 1)
Quarter: 2016Q4

REPORT INFORMATION
  Report Type: Spontaneous
  Country: US (occurrence: US)
  Receive Date: 20161221
  Receipt Date: 20161221
  Transmission Date: 20170207
  Serious: Yes (Disabling)
  Sender: FDA-Public Use
  Company Number: None

PATIENT
  Age: 24 Year
  Sex: Female
  Weight: 49.95 kg

DRUGS (12)
  1. XANAX [Concomitant]
     Active Substance: ALPRAZOLAM
  2. VITAMIN D [Concomitant]
     Active Substance: CHOLECALCIFEROL
  3. LYRICA [Concomitant]
     Active Substance: PREGABALIN
  4. VITAMIN B [Concomitant]
     Active Substance: VITAMIN B
  5. LUPRON DEPOT [Suspect]
     Active Substance: LEUPROLIDE ACETATE
     Indication: ENDOMETRIOSIS
     Dates: start: 20060506, end: 20060920
  6. PAXIL [Concomitant]
     Active Substance: PAROXETINE HYDROCHLORIDE
  7. CALCIUM [Concomitant]
     Active Substance: CALCIUM
  8. PERCOCET [Concomitant]
     Active Substance: ACETAMINOPHEN\OXYCODONE HYDROCHLORIDE
  9. CLONAZAPAM [Concomitant]
     Active Substance: CLONAZEPAM
  10. MELOXICAN [Concomitant]
     Active Substance: MELOXICAM
  11. FISH OIL [Concomitant]
     Active Substance: FISH OIL
  12. ADDERALL [Concomitant]
     Active Substance: AMPHETAMINE ASPARTATE\AMPHETAMINE SULFATE\DEXTROAMPHETAMINE SACCHARATE\DEXTROAMPHETAMINE SULFATE

REACTIONS (24)
  - Tooth loss [None]
  - Narcolepsy [None]
  - Anxiety [None]
  - Swelling [None]
  - Visual impairment [None]
  - Concussion [None]
  - Pain [None]
  - Pruritus [None]
  - Urinary hesitation [None]
  - Muscular weakness [None]
  - Balance disorder [None]
  - Depression [None]
  - Cataplexy [None]
  - Fall [None]
  - General physical health deterioration [None]
  - Osteopenia [None]
  - Exostosis [None]
  - Memory impairment [None]
  - Insomnia [None]
  - Paraesthesia [None]
  - Fatigue [None]
  - Dizziness [None]
  - Osteoarthritis [None]
  - Heart rate increased [None]

NARRATIVE: CASE EVENT DATE: 20060506
